FAERS Safety Report 4295708-5 (Version None)
Quarter: 2004Q1

REPORT INFORMATION
  Report Type: 
  Country: None (occurrence: None)
  Receive Date: 20040216
  Receipt Date: 20040203
  Transmission Date: 20041129
  Serious: Yes (Hospitalization)
  Sender: FDA-Public Use
  Company Number: GB-GLAXOSMITHKLINE-B0322544A

PATIENT
  Age: 12 Year
  Sex: Male

DRUGS (6)
  1. CEFTAZIDIME SODIUM [Suspect]
     Indication: CYSTIC FIBROSIS
     Dosage: 125MGK PER DAY
     Route: 065
  2. GENTAMICIN [Suspect]
     Indication: CYSTIC FIBROSIS
     Dosage: 6MGK PER DAY
     Route: 065
  3. FLUCLOXACILLIN [Concomitant]
     Route: 065
  4. SALMETEROL [Concomitant]
     Route: 065
  5. URSODEOXYCHOLIC ACID [Concomitant]
     Route: 065
  6. FLUTICASONE PROPIONATE [Concomitant]

REACTIONS (5)
  - DIARRHOEA [None]
  - DRUG INTERACTION [None]
  - RENAL FAILURE ACUTE [None]
  - RENAL TUBULAR NECROSIS [None]
  - VOMITING [None]
